FAERS Safety Report 13372582 (Version 2)
Quarter: 2017Q1

REPORT INFORMATION
  Report Type: Report from Study
  Country: FR (occurrence: FR)
  Receive Date: 20170327
  Receipt Date: 20170331
  Transmission Date: 20170429
  Serious: Yes (Death)
  Sender: FDA-Public Use
  Company Number: FR-ROCHE-1908730

PATIENT
  Age: 66 Year
  Sex: Female
  Weight: 65 kg

DRUGS (13)
  1. NEORECORMON [Concomitant]
     Active Substance: ERYTHROPOIETIN
     Indication: ANAEMIA
     Route: 065
     Dates: start: 20170308
  2. NEORECORMON [Concomitant]
     Active Substance: ERYTHROPOIETIN
     Dosage: 30000
     Route: 065
     Dates: start: 20170125
  3. CARBOPLATIN. [Suspect]
     Active Substance: CARBOPLATIN
     Indication: NON-SMALL CELL LUNG CANCER STAGE IV
     Dosage: DATE OF MOST RECENT DOSE PRIOR TO THE EVENT ONSET: 09/MAR/2017 OF 260 MG WITH AN UNKNOWN START TIME
     Route: 042
     Dates: start: 20161213
  4. LYRICA [Concomitant]
     Active Substance: PREGABALIN
     Indication: ANXIETY
     Route: 065
     Dates: start: 201610
  5. INNOHEP [Concomitant]
     Active Substance: TINZAPARIN SODIUM
     Indication: THROMBOSIS PROPHYLAXIS
     Route: 065
     Dates: start: 201610
  6. BICARBONATE [Concomitant]
     Active Substance: BICARBONATE ION
     Indication: STOMATITIS
     Route: 065
     Dates: start: 20170223
  7. SEROPLEX [Concomitant]
     Active Substance: ESCITALOPRAM OXALATE
     Indication: ANXIETY
     Route: 065
     Dates: start: 201610
  8. NAB-PACLITAXEL [Suspect]
     Active Substance: PACLITAXEL
     Indication: NON-SMALL CELL LUNG CANCER STAGE IV
     Dosage: DATE OF MOST RECENT DOSE PRIOR TO THE EVENT ONSET: 23/FEB/2017 OF 130 MG WITH AN UNKNOWN START TIME
     Route: 042
     Dates: start: 20161213
  9. VERAPAMIL [Concomitant]
     Active Substance: VERAPAMIL HYDROCHLORIDE
     Indication: HYPERTENSION
     Route: 065
     Dates: start: 2008
  10. BROMAZEPAM [Concomitant]
     Active Substance: BROMAZEPAM
     Indication: ANXIETY
     Route: 065
     Dates: start: 20161220
  11. AMPHOTERICINE B [Concomitant]
     Active Substance: AMPHOTERICIN B
     Indication: STOMATITIS
     Route: 065
     Dates: start: 20170223
  12. OXYCONTIN [Concomitant]
     Active Substance: OXYCODONE HYDROCHLORIDE
     Indication: BACK PAIN
     Route: 065
     Dates: start: 20161123
  13. ATEZOLIZUMAB [Suspect]
     Active Substance: ATEZOLIZUMAB
     Indication: NON-SMALL CELL LUNG CANCER STAGE IV
     Dosage: DATE OF MOST RECENT DOSE PRIOR TO THE EVENT ONSET: 09/MAR/2017 WITH A START TIME OF 14:43?ON DAY 1 O
     Route: 042
     Dates: start: 20161213

REACTIONS (1)
  - Hypovolaemia [Fatal]

NARRATIVE: CASE EVENT DATE: 20170316
